FAERS Safety Report 24348703 (Version 3)
Quarter: 2024Q4

REPORT INFORMATION
  Report Type: Spontaneous
  Country: US (occurrence: US)
  Receive Date: 20240923
  Receipt Date: 20241020
  Transmission Date: 20250114
  Serious: No
  Sender: LUPIN
  Company Number: US-LUPIN PHARMACEUTICALS INC.-2024-08932

PATIENT

DRUGS (3)
  1. BROMFENAC [Suspect]
     Active Substance: BROMFENAC
     Indication: Cataract operation
     Dosage: UNK, BID (1 DROP IN LEFT EYE TWICE DAILY)
     Route: 047
     Dates: start: 20240726, end: 20240819
  2. BROMFENAC [Suspect]
     Active Substance: BROMFENAC
     Dosage: UNK, BID (1 DROP IN LEFT EYE TWICE DAILY)
     Route: 047
     Dates: start: 20240820, end: 20240823
  3. BROMFENAC [Suspect]
     Active Substance: BROMFENAC
     Dosage: UNK, BID (1 DROP IN BOTH EYES TWICE DAILY)
     Route: 047
     Dates: start: 20240828, end: 20240901

REACTIONS (3)
  - Product dose omission issue [Unknown]
  - Product packaging quantity issue [Unknown]
  - No adverse event [Unknown]
